FAERS Safety Report 16355207 (Version 4)
Quarter: 2019Q3

REPORT INFORMATION
  Report Type: Spontaneous
  Country: US (occurrence: US)
  Receive Date: 20190524
  Receipt Date: 20190709
  Transmission Date: 20191004
  Serious: Yes (Other)
  Sender: FDA-Public Use
  Company Number: US-009507513-1905USA007354

PATIENT
  Age: 15 Year
  Sex: Female
  Weight: 58 kg

DRUGS (1)
  1. NEXPLANON [Suspect]
     Active Substance: ETONOGESTREL
     Indication: CONTRACEPTION
     Dosage: SINGLE IMPLANT, NON DOMINANT ARM
     Route: 059
     Dates: start: 2016

REACTIONS (7)
  - Unintended pregnancy [Recovered/Resolved]
  - Complication associated with device [Not Recovered/Not Resolved]
  - Product dose omission [Unknown]
  - Pregnancy with implant contraceptive [Recovered/Resolved]
  - Device dislocation [Not Recovered/Not Resolved]
  - Implant site scar [Unknown]
  - Menorrhagia [Recovered/Resolved]

NARRATIVE: CASE EVENT DATE: 2016
